FAERS Safety Report 9344089 (Version 1)
Quarter: 2013Q2

REPORT INFORMATION
  Report Type: Spontaneous
  Country: US (occurrence: US)
  Receive Date: 20130612
  Receipt Date: 20130612
  Transmission Date: 20140414
  Serious: Yes (Other)
  Sender: FDA-Public Use
  Company Number: US-BAYER-2013-069805

PATIENT
  Age: 76 Year
  Sex: Female

DRUGS (1)
  1. BAYER GENUINE ASPIRIN ORIGINAL STRENGTH [Suspect]

REACTIONS (2)
  - Dyspnoea [None]
  - Middle insomnia [None]
